FAERS Safety Report 21891239 (Version 1)
Quarter: 2023Q1

REPORT INFORMATION
  Report Type: Report from Study
  Country: US (occurrence: US)
  Receive Date: 20230120
  Receipt Date: 20230120
  Transmission Date: 20230418
  Serious: Yes (Other)
  Sender: FDA-Public Use
  Company Number: US-ABBVIE-4275498

PATIENT
  Age: 78 Year
  Sex: Female

DRUGS (1)
  1. HUMIRA [Suspect]
     Active Substance: ADALIMUMAB
     Indication: Psoriatic arthropathy
     Dosage: FORM STRENGTH 40 MILLIGRAMS
     Route: 058
     Dates: start: 20220926, end: 20230111

REACTIONS (5)
  - Lupus-like syndrome [Unknown]
  - Psoriasis [Unknown]
  - Headache [Unknown]
  - Psoriatic arthropathy [Unknown]
  - Flushing [Unknown]

NARRATIVE: CASE EVENT DATE: 20220928
